FAERS Safety Report 9852364 (Version 1)
Quarter: 2014Q1

REPORT INFORMATION
  Report Type: Spontaneous
  Country: JP (occurrence: JP)
  Receive Date: 20140129
  Receipt Date: 20140129
  Transmission Date: 20141002
  Serious: Yes (Other)
  Sender: FDA-Public Use
  Company Number: JP-ASTELLAS-2014JP000696

PATIENT
  Sex: 0

DRUGS (1)
  1. BETANIS [Suspect]
     Route: 048

REACTIONS (1)
  - Nephrotic syndrome [Not Recovered/Not Resolved]
